FAERS Safety Report 7767111-4 (Version None)
Quarter: 2011Q3

REPORT INFORMATION
  Report Type: 
  Country: None (occurrence: None)
  Receive Date: 20110922
  Receipt Date: 20110428
  Transmission Date: 20111222
  Serious: No
  Sender: FDA-Public Use
  Company Number: US-ASTRAZENECA-2011SE25322

PATIENT
  Age: 90 Month
  Sex: Male
  Weight: 37.2 kg

DRUGS (4)
  1. SEROQUEL [Suspect]
     Indication: AUTISM SPECTRUM DISORDER
     Dosage: 25-50 MG DAILY
     Route: 048
  2. INTUNIV [Concomitant]
  3. SEROQUEL [Suspect]
     Indication: BIPOLAR DISORDER
     Dosage: 25-50 MG DAILY
     Route: 048
  4. SEROQUEL [Suspect]
     Indication: ATTENTION DEFICIT/HYPERACTIVITY DISORDER
     Dosage: 25-50 MG DAILY
     Route: 048

REACTIONS (2)
  - OFF LABEL USE [None]
  - HEAD TITUBATION [None]
